FAERS Safety Report 24172948 (Version 2)
Quarter: 2024Q3

REPORT INFORMATION
  Report Type: Report from Study
  Country: GB (occurrence: GB)
  Receive Date: 20240805
  Receipt Date: 20240924
  Transmission Date: 20241016
  Serious: Yes (Death)
  Sender: ROCHE
  Company Number: GB-ROCHE-10000042414

PATIENT
  Sex: Female

DRUGS (2)
  1. TOCILIZUMAB [Suspect]
     Active Substance: TOCILIZUMAB
     Indication: Giant cell arteritis
     Route: 058
     Dates: start: 20240727
  2. TOCILIZUMAB [Suspect]
     Active Substance: TOCILIZUMAB
     Route: 058
     Dates: start: 20240726

REACTIONS (1)
  - Aortic dissection [Fatal]
